FAERS Safety Report 9779808 (Version 1)
Quarter: 2013Q4

REPORT INFORMATION
  Report Type: Spontaneous
  Country: PK (occurrence: PK)
  Receive Date: 20131223
  Receipt Date: 20131223
  Transmission Date: 20140711
  Serious: Yes (Hospitalization)
  Sender: FDA-Public Use
  Company Number: PK-GLAXOSMITHKLINE-B0954624A

PATIENT
  Age: 5 Year
  Sex: Female
  Weight: 15 kg

DRUGS (7)
  1. VENTOLINE [Suspect]
     Indication: ASTHMA
     Dosage: 4CC SIX TIMES PER DAY
     Route: 055
  2. VENTOLINE [Suspect]
     Indication: ASTHMA
     Dosage: 2TSP THREE TIMES PER DAY
     Route: 048
  3. CEFTRIAXONE [Suspect]
     Dosage: 2G PER DAY
     Route: 042
  4. CLARITHROMYCIN [Suspect]
     Dosage: 5ML TWICE PER DAY
     Route: 048
  5. CALPOL [Suspect]
     Dosage: 1TSP SIX TIMES PER DAY
     Route: 048
  6. HYDROCORTISONE SODIUM SUCCINATE [Suspect]
     Dosage: 30MG THREE TIMES PER DAY
     Route: 042
  7. CLENIL [Suspect]
     Route: 055

REACTIONS (14)
  - Asthma [Unknown]
  - Dyspnoea [Unknown]
  - Pyrexia [Unknown]
  - Chills [Unknown]
  - Chills [Unknown]
  - Chills [Unknown]
  - Vomiting [Unknown]
  - Drug ineffective [Unknown]
  - Upper respiratory tract infection [Unknown]
  - Respiratory rate increased [Unknown]
  - Drug interaction [Unknown]
  - Overdose [Unknown]
  - Drug administered to patient of inappropriate age [Unknown]
  - Incorrect dose administered [Unknown]
